FAERS Safety Report 21898971 (Version 1)
Quarter: 2023Q1

REPORT INFORMATION
  Report Type: Spontaneous
  Country: US (occurrence: US)
  Receive Date: 20230123
  Receipt Date: 20230123
  Transmission Date: 20230418
  Serious: No
  Sender: FDA-Public Use
  Company Number: US-FERRINGPH-2022FE04536

PATIENT
  Age: 67 Year
  Sex: Female
  Weight: 62.585 kg

DRUGS (1)
  1. CLENPIQ [Suspect]
     Active Substance: ANHYDROUS CITRIC ACID\MAGNESIUM OXIDE\SODIUM PICOSULFATE
     Indication: Bowel preparation
     Dosage: 1 BOTTLE
     Route: 048
     Dates: start: 20220823, end: 20220823

REACTIONS (11)
  - Blood potassium decreased [Recovering/Resolving]
  - Vision blurred [Recovering/Resolving]
  - Paraesthesia [Recovering/Resolving]
  - Tremor [Recovering/Resolving]
  - Palpitations [Recovering/Resolving]
  - Gait disturbance [Recovering/Resolving]
  - Blood pressure increased [Recovering/Resolving]
  - Nervousness [Recovering/Resolving]
  - Product storage error [Unknown]
  - Headache [Recovering/Resolving]
  - Incorrect dose administered [Unknown]

NARRATIVE: CASE EVENT DATE: 20220823
